FAERS Safety Report 4672636-4 (Version None)
Quarter: 2005Q2

REPORT INFORMATION
  Report Type: 
  Country: None (occurrence: None)
  Receive Date: 20050524
  Receipt Date: 20050512
  Transmission Date: 20051028
  Serious: Yes (Hospitalization)
  Sender: FDA-Public Use
  Company Number: US-GLAXOSMITHKLINE-A0558280A

PATIENT
  Age: 55 Year
  Sex: Female
  Weight: 75 kg

DRUGS (3)
  1. AQUAFRESH TOOTHPASTE [Suspect]
     Indication: DENTAL CLEANING
     Dates: start: 19850101, end: 20050201
  2. AQUAFRESH FLUORIDE PROTECTION TOOTHPASTE PUMP [Suspect]
     Indication: DENTAL CLEANING
     Dates: start: 20050201, end: 20050501
  3. PREMARIN [Suspect]
     Indication: HYSTERECTOMY
     Dates: start: 19920101

REACTIONS (4)
  - BURNING SENSATION [None]
  - CHEILITIS [None]
  - OVARIAN CANCER [None]
  - VAGINAL CANCER [None]
